FAERS Safety Report 8236702-9 (Version None)
Quarter: 2012Q1

REPORT INFORMATION
  Report Type: 
  Country: None (occurrence: None)
  Receive Date: 20120326
  Receipt Date: 20120326
  Transmission Date: 20120608
  Serious: Yes (Other)
  Sender: FDA-Public Use
  Company Number: None

PATIENT
  Sex: Male
  Weight: 76.6579 kg

DRUGS (1)
  1. FLOMAX [Suspect]
     Dosage: 0.4 MG 1 X DAY ORAL
     Route: 048

REACTIONS (4)
  - NAUSEA [None]
  - PAIN IN EXTREMITY [None]
  - DIZZINESS [None]
  - MUSCULOSKELETAL PAIN [None]
